FAERS Safety Report 13467942 (Version 1)
Quarter: 2017Q2

REPORT INFORMATION
  Report Type: Spontaneous
  Country: RU (occurrence: RU)
  Receive Date: 20170421
  Receipt Date: 20170421
  Transmission Date: 20170830
  Serious: Yes (Other)
  Sender: FDA-Public Use
  Company Number: RU-ASTRAZENECA-2017SE41111

PATIENT
  Age: 60 Year
  Sex: Female

DRUGS (4)
  1. NOLIPREL FORTE [Concomitant]
  2. CEREPRO [Concomitant]
  3. SYMBICORT [Suspect]
     Active Substance: BUDESONIDE\FORMOTEROL FUMARATE DIHYDRATE
     Indication: CHRONIC OBSTRUCTIVE PULMONARY DISEASE
     Dosage: 160/4.5 MCG. 120 DOSES, 2 INHALATIONS, BID
     Route: 055
     Dates: start: 2010
  4. SYMBICORT [Suspect]
     Active Substance: BUDESONIDE\FORMOTEROL FUMARATE DIHYDRATE
     Indication: ASTHMA
     Dosage: 160/4.5 MCG. 120 DOSES, 2 INHALATIONS, BID
     Route: 055
     Dates: start: 2010

REACTIONS (2)
  - Ischaemic stroke [Unknown]
  - Transient ischaemic attack [Unknown]

NARRATIVE: CASE EVENT DATE: 20160121
